FAERS Safety Report 6062718-7 (Version None)
Quarter: 2009Q1

REPORT INFORMATION
  Report Type: 
  Country: None (occurrence: None)
  Receive Date: 20090202
  Receipt Date: 20090202
  Transmission Date: 20090719
  Serious: Yes (Other)
  Sender: FDA-Public Use
  Company Number: None

PATIENT
  Sex: Male
  Weight: 77.1115 kg

DRUGS (2)
  1. CELEXA [Suspect]
     Indication: DEPRESSION
     Dosage: 20 MG. 1 TIME/DAY PO
     Route: 048
     Dates: start: 20001115, end: 20061115
  2. CITALOPRAM 20 MG. RDY 343 [Suspect]
     Indication: DEPRESSION
     Dosage: 10, TNEN 20 MG. 1 IME/DAY PO
     Route: 048
     Dates: start: 20061203, end: 20081127

REACTIONS (2)
  - MUSCLE CONTRACTIONS INVOLUNTARY [None]
  - PARKINSON'S DISEASE [None]
